FAERS Safety Report 8237195-8 (Version None)
Quarter: 2012Q1

REPORT INFORMATION
  Report Type: 
  Country: None (occurrence: None)
  Receive Date: 20120327
  Receipt Date: 20120327
  Transmission Date: 20120608
  Serious: Yes (Disabling)
  Sender: FDA-Public Use
  Company Number: None

PATIENT
  Age: 79 Year
  Sex: Female

DRUGS (2)
  1. ENOXAPARIN [Concomitant]
  2. INLYTA [Suspect]
     Indication: RENAL CANCER
     Dosage: 5MG
     Route: 048

REACTIONS (3)
  - METAMORPHOPSIA [None]
  - TREMOR [None]
  - AMNESIA [None]
